FAERS Safety Report 15831664 (Version 1)
Quarter: 2019Q1

REPORT INFORMATION
  Report Type: Spontaneous
  Country: US (occurrence: US)
  Receive Date: 20190115
  Receipt Date: 20190115
  Transmission Date: 20190417
  Serious: Yes (Hospitalization)
  Sender: FDA-Public Use
  Company Number: None

PATIENT
  Age: 66 Year
  Sex: Male
  Weight: 86.85 kg

DRUGS (1)
  1. BASAGLAR [Suspect]
     Active Substance: INSULIN GLARGINE
     Indication: TYPE 1 DIABETES MELLITUS
     Dosage: ?          QUANTITY:1 KWIKPEN;?
     Route: 030

REACTIONS (5)
  - Loss of consciousness [None]
  - Product substitution issue [None]
  - Blood glucose decreased [None]
  - Head injury [None]
  - Road traffic accident [None]

NARRATIVE: CASE EVENT DATE: 20181218
